FAERS Safety Report 19614301 (Version 1)
Quarter: 2021Q3

REPORT INFORMATION
  Report Type: Spontaneous
  Country: DE (occurrence: DE)
  Receive Date: 20210727
  Receipt Date: 20210727
  Transmission Date: 20211014
  Serious: Yes (Hospitalization)
  Sender: FDA-Public Use
  Company Number: DE-PFIZER INC-2021873811

PATIENT
  Age: 6 Year
  Sex: Male

DRUGS (13)
  1. DIHYDRALAZINE [Suspect]
     Active Substance: DIHYDRALAZINE
  2. AMPHOTERICIN B. [Suspect]
     Active Substance: AMPHOTERICIN B
     Indication: INFECTION PROPHYLAXIS
  3. HYDROMORPHONE [Suspect]
     Active Substance: HYDROMORPHONE
  4. OMEPRAZOLE. [Suspect]
     Active Substance: OMEPRAZOLE
  5. LEVETIRACETAM. [Suspect]
     Active Substance: LEVETIRACETAM
  6. URSODEOXYCHOLIC ACID [Suspect]
     Active Substance: URSODIOL
  7. AMLODIPINE BESILATE [Suspect]
     Active Substance: AMLODIPINE BESYLATE
  8. FOSCARNET [Suspect]
     Active Substance: FOSCARNET
     Indication: INFECTION PROPHYLAXIS
  9. TACROLIMUS. [Suspect]
     Active Substance: TACROLIMUS
     Indication: POSTERIOR REVERSIBLE ENCEPHALOPATHY SYNDROME
  10. TACROLIMUS. [Suspect]
     Active Substance: TACROLIMUS
     Indication: IMMUNOSUPPRESSION
  11. PIPERACILLIN AND TAZOBACTAM [Suspect]
     Active Substance: PIPERACILLIN SODIUM\TAZOBACTAM SODIUM
     Indication: INFECTION PROPHYLAXIS
  12. SPIRONOLACTONE. [Suspect]
     Active Substance: SPIRONOLACTONE
  13. PREDNISOLONE. [Suspect]
     Active Substance: PREDNISOLONE
     Indication: IMMUNOSUPPRESSION

REACTIONS (1)
  - Toxic epidermal necrolysis [Recovered/Resolved]
